FAERS Safety Report 5708117-6 (Version None)
Quarter: 2008Q2

REPORT INFORMATION
  Report Type: 
  Country: None (occurrence: None)
  Receive Date: 20080417
  Receipt Date: 20080407
  Transmission Date: 20081010
  Serious: Yes (Other)
  Sender: FDA-Public Use
  Company Number: FR-ELI_LILLY_AND_COMPANY-FR200609006911

PATIENT
  Age: 71 Year
  Sex: Female
  Weight: 57 kg

DRUGS (4)
  1. FORTEO [Suspect]
     Indication: OSTEOPOROSIS
     Dosage: 20 UG, DAILY (1/D)
     Route: 058
     Dates: start: 20060517, end: 20060929
  2. LEVOTHYROXINE SODIUM [Concomitant]
     Indication: HYPOTHYROIDISM
     Dosage: 50 UG, DAILY (1/D)
     Route: 048
     Dates: start: 20030101
  3. ATORVASTATIN CALCIUM [Concomitant]
     Indication: DYSLIPIDAEMIA
     Dosage: 10 MG, DAILY (1/D)
     Route: 048
     Dates: start: 20030101
  4. TARDYFERON [Concomitant]
     Indication: ANAEMIA
     Dosage: 1 D/F, DAILY (1/D)
     Route: 048
     Dates: start: 20060201

REACTIONS (6)
  - ARTHRALGIA [None]
  - DEEP VEIN THROMBOSIS [None]
  - EPISTAXIS [None]
  - HEADACHE [None]
  - HYPERTENSION [None]
  - RASH [None]
